FAERS Safety Report 15714006 (Version 1)
Quarter: 2018Q4

REPORT INFORMATION
  Report Type: Spontaneous
  Country: GB (occurrence: GB)
  Receive Date: 20181212
  Receipt Date: 20181212
  Transmission Date: 20190205
  Serious: Yes (Death, Life-Threatening)
  Sender: FDA-Public Use
  Company Number: GB-JNJFOC-EMADSS2001000010

PATIENT
  Age: 65 Year
  Sex: Male
  Weight: 64 kg

DRUGS (6)
  1. DUROGESIC [Suspect]
     Active Substance: FENTANYL
     Indication: PAIN
     Route: 062
     Dates: start: 20000717, end: 20001011
  2. BACLOFEN. [Concomitant]
     Active Substance: BACLOFEN
     Indication: HICCUPS
     Route: 048
     Dates: start: 200007
  3. LISINOPRIL. [Concomitant]
     Active Substance: LISINOPRIL
     Indication: CARDIAC FAILURE
     Route: 048
  4. DUROGESIC [Suspect]
     Active Substance: FENTANYL
     Indication: PAIN
     Route: 062
  5. HALOPERIDOL. [Concomitant]
     Active Substance: HALOPERIDOL
     Indication: NAUSEA
     Route: 048
     Dates: start: 200007
  6. TEMAZEPAM. [Concomitant]
     Active Substance: TEMAZEPAM
     Indication: INSOMNIA
     Route: 048
     Dates: start: 200007

REACTIONS (11)
  - Hypercalcaemia [Unknown]
  - Hypoalbuminaemia [Unknown]
  - Renal impairment [Unknown]
  - Miosis [Recovered/Resolved]
  - Lower respiratory tract infection [Unknown]
  - Coma [Recovered/Resolved]
  - Depression [Unknown]
  - Loss of consciousness [Recovered/Resolved]
  - Respiratory depression [Recovered/Resolved]
  - Sudden death [Fatal]
  - Pyrexia [Unknown]

NARRATIVE: CASE EVENT DATE: 20001006
